FAERS Safety Report 9711922 (Version 2)
Quarter: 2013Q4

REPORT INFORMATION
  Report Type: Spontaneous
  Country: US (occurrence: US)
  Receive Date: 20131126
  Receipt Date: 20131126
  Transmission Date: 20140711
  Serious: No
  Sender: FDA-Public Use
  Company Number: US-BRISTOL-MYERS SQUIBB COMPANY-18836833

PATIENT
  Age: 69 Year
  Sex: Female

DRUGS (1)
  1. BYDUREON [Suspect]
     Indication: TYPE 2 DIABETES MELLITUS
     Route: 058
     Dates: start: 20121206, end: 20130411

REACTIONS (5)
  - Cyanosis [Unknown]
  - Injection site granuloma [Recovered/Resolved]
  - Tremor [Unknown]
  - Asthenia [Unknown]
  - Dizziness [Unknown]
